FAERS Safety Report 18481458 (Version 4)
Quarter: 2023Q2

REPORT INFORMATION
  Report Type: Spontaneous
  Country: JP (occurrence: JP)
  Receive Date: 20201109
  Receipt Date: 20230519
  Transmission Date: 20230722
  Serious: Yes (Hospitalization, Other)
  Sender: FDA-Public Use
  Company Number: JP-BRISTOL-MYERS SQUIBB COMPANY-BMS-2020-093581

PATIENT
  Age: 73 Year
  Sex: Male

DRUGS (2)
  1. OPDIVO [Suspect]
     Active Substance: NIVOLUMAB
     Indication: Non-small cell lung cancer recurrent
     Dosage: UNK
     Route: 041
  2. DOCETAXEL [Concomitant]
     Active Substance: DOCETAXEL
     Indication: Non-small cell lung cancer recurrent
     Dosage: UNK

REACTIONS (2)
  - Immune-mediated cholangitis [Recovering/Resolving]
  - Biliary tract infection [Recovering/Resolving]
